FAERS Safety Report 15178504 (Version 5)
Quarter: 2019Q1

REPORT INFORMATION
  Report Type: Report from Study
  Country: CA (occurrence: CA)
  Receive Date: 20180722
  Receipt Date: 20190117
  Transmission Date: 20190417
  Serious: Yes (Other)
  Sender: FDA-Public Use
  Company Number: CA-ROCHE-1830277

PATIENT
  Age: 60 Year
  Sex: Male
  Weight: 93.3 kg

DRUGS (11)
  1. ACTEMRA [Suspect]
     Active Substance: TOCILIZUMAB
     Indication: RHEUMATOID ARTHRITIS
     Route: 058
     Dates: start: 20170529, end: 20170717
  2. RITUXAN [Suspect]
     Active Substance: RITUXIMAB
     Indication: RHEUMATOID ARTHRITIS
     Route: 042
     Dates: start: 20101118, end: 20111219
  3. ARAVA [Concomitant]
     Active Substance: LEFLUNOMIDE
  4. HYDROCHLOROTHIAZIDE. [Concomitant]
     Active Substance: HYDROCHLOROTHIAZIDE
  5. COVERSYL [Concomitant]
     Active Substance: PERINDOPRIL
  6. ADVIL [Concomitant]
     Active Substance: IBUPROFEN
  7. ASPIRIN. [Concomitant]
     Active Substance: ASPIRIN
  8. ACTEMRA [Suspect]
     Active Substance: TOCILIZUMAB
     Indication: RHEUMATOID ARTHRITIS
     Dosage: ON 26/APR/2017, SHE ALSO RECIEVED DOSE.?LAST INFUSION OF TOCILIZUMAB WAS RECEIVED ON 01/MAR/2017
     Route: 042
     Dates: start: 20160913, end: 20170426
  9. ACTEMRA [Suspect]
     Active Substance: TOCILIZUMAB
     Route: 058
     Dates: start: 20170717
  10. ACTEMRA [Suspect]
     Active Substance: TOCILIZUMAB
     Dosage: RE-STARTED
     Route: 042
     Dates: start: 20170821
  11. ACTEMRA [Suspect]
     Active Substance: TOCILIZUMAB
     Route: 042

REACTIONS (21)
  - Injection site reaction [Not Recovered/Not Resolved]
  - Arthralgia [Not Recovered/Not Resolved]
  - Infusion related reaction [Recovered/Resolved]
  - Rheumatoid arthritis [Not Recovered/Not Resolved]
  - Mood altered [Unknown]
  - Injection site rash [Recovered/Resolved]
  - Blood pressure increased [Unknown]
  - Disability assessment scale score increased [Unknown]
  - Heart rate increased [Unknown]
  - Injection site swelling [Recovered/Resolved]
  - Oxygen saturation decreased [Unknown]
  - Nasopharyngitis [Recovering/Resolving]
  - Dysphonia [Not Recovered/Not Resolved]
  - Drug ineffective [Unknown]
  - Injection site erythema [Recovered/Resolved]
  - Blood pressure decreased [Unknown]
  - Blood pressure fluctuation [Unknown]
  - Sneezing [Not Recovered/Not Resolved]
  - Device allergy [Not Recovered/Not Resolved]
  - Injection site pruritus [Recovered/Resolved]
  - Sputum retention [Not Recovered/Not Resolved]

NARRATIVE: CASE EVENT DATE: 201610
